FAERS Safety Report 24077480 (Version 1)
Quarter: 2024Q3

REPORT INFORMATION
  Report Type: Spontaneous
  Country: EU (occurrence: EU)
  Receive Date: 20240711
  Receipt Date: 20240711
  Transmission Date: 20241016
  Serious: Yes (Hospitalization, Disabling)
  Sender: BAUSCH AND LOMB
  Company Number: ES-BAUSCHBL-2024BNL029496

PATIENT
  Age: 64 Year
  Sex: Male

DRUGS (4)
  1. PREDNISOLONE SODIUM PHOSPHATE [Suspect]
     Active Substance: PREDNISOLONE SODIUM PHOSPHATE
     Indication: Sympathetic ophthalmia
     Route: 061
  2. PREDNISONE [Suspect]
     Active Substance: PREDNISONE
     Indication: Sympathetic ophthalmia
     Route: 048
  3. METHOTREXATE [Suspect]
     Active Substance: METHOTREXATE
     Indication: Sympathetic ophthalmia
     Route: 065
  4. DEXAMETHASONE [Suspect]
     Active Substance: DEXAMETHASONE
     Indication: Sympathetic ophthalmia
     Dosage: INTRAVITREAL IMPLANTATION
     Route: 050

REACTIONS (2)
  - Endophthalmitis [Not Recovered/Not Resolved]
  - Condition aggravated [Not Recovered/Not Resolved]
